FAERS Safety Report 14352817 (Version 5)
Quarter: 2018Q1

REPORT INFORMATION
  Report Type: Spontaneous
  Country: JP (occurrence: JP)
  Receive Date: 20180104
  Receipt Date: 20180328
  Transmission Date: 20180509
  Serious: Yes (Hospitalization, Other)
  Sender: FDA-Public Use
  Company Number: JP-ALLERGAN-1774363US

PATIENT
  Age: 73 Year
  Sex: Female

DRUGS (1)
  1. RISEDRONATE SODIUM - BP [Suspect]
     Active Substance: RISEDRONATE SODIUM
     Indication: OSTEOPOROSIS
     Dosage: UNK
     Route: 048

REACTIONS (11)
  - Oesophageal haemorrhage [Recovering/Resolving]
  - Pemphigus [Recovering/Resolving]
  - Oedema mucosal [Recovering/Resolving]
  - Oesophageal ulcer [Recovering/Resolving]
  - Mucosal hypertrophy [Recovering/Resolving]
  - Weight decreased [Recovering/Resolving]
  - Inflammation [Recovering/Resolving]
  - Oesophageal stenosis [Recovering/Resolving]
  - Condition aggravated [Recovering/Resolving]
  - Mouth ulceration [Recovering/Resolving]
  - Dysphagia [Recovering/Resolving]
